FAERS Safety Report 7173842-X (Version None)
Quarter: 2010Q4

REPORT INFORMATION
  Report Type: 
  Country: None (occurrence: None)
  Receive Date: 20101219
  Receipt Date: 20100311
  Transmission Date: 20110411
  Serious: Yes (Other)
  Sender: FDA-Public Use
  Company Number: US-AMGEN-KDL398930

PATIENT

DRUGS (9)
  1. ENBREL [Suspect]
     Indication: PRODUCT USED FOR UNKNOWN INDICATION
     Dosage: 25 MG, QWK
     Route: 058
  2. SIMVASTATIN [Concomitant]
     Dosage: 10 MG, UNK
  3. ENALAPRIL [Concomitant]
     Dosage: 10 MG, UNK
  4. METOPROLOL TARTRATE [Concomitant]
     Dosage: 25 MG, UNK
  5. ERGOCALCIFEROL [Concomitant]
     Dosage: 1000 IU, UNK
  6. CYCLOSPORINE [Concomitant]
     Dosage: 100 MG, UNK
  7. HERBAL SUPPLEMENT [Concomitant]
  8. DOXYCYCLINE [Concomitant]
     Dosage: UNK UNK, UNK
  9. MULTI-VITAMINS [Concomitant]

REACTIONS (1)
  - RASH GENERALISED [None]
